FAERS Safety Report 21548519 (Version 1)
Quarter: 2022Q4

REPORT INFORMATION
  Report Type: Spontaneous
  Country: US (occurrence: US)
  Receive Date: 20221103
  Receipt Date: 20221103
  Transmission Date: 20230112
  Serious: No
  Sender: FDA-Public Use
  Company Number: US-TEVA-2022-US-2818172

PATIENT
  Age: 67 Year
  Sex: Male
  Weight: 69.85 kg

DRUGS (1)
  1. QVAR REDIHALER [Suspect]
     Active Substance: BECLOMETHASONE DIPROPIONATE
     Indication: Chronic obstructive pulmonary disease
     Dosage: 40 MCG/DOSE, 2 PUFFS TWICE A DAY, INHALATION - AEROSOL
     Route: 065

REACTIONS (4)
  - Abdominal discomfort [Unknown]
  - Expired device used [Unknown]
  - Product use in unapproved indication [Unknown]
  - Device malfunction [Unknown]

NARRATIVE: CASE EVENT DATE: 20221014
